FAERS Safety Report 9722342 (Version 1)
Quarter: 2013Q4

REPORT INFORMATION
  Report Type: Report from Study
  Country: EG (occurrence: EG)
  Receive Date: 20131202
  Receipt Date: 20131202
  Transmission Date: 20140711
  Serious: Yes (Hospitalization)
  Sender: FDA-Public Use
  Company Number: EG-SA-2013SA123391

PATIENT
  Age: 59 Year
  Sex: Male

DRUGS (4)
  1. LANTUS [Suspect]
     Indication: TYPE 2 DIABETES MELLITUS
     Dosage: DOSE DECREASED TO 40 IU/DAY
     Route: 058
     Dates: start: 20130101
  2. ACTRAPID [Concomitant]
     Indication: DIABETES MELLITUS
  3. DIAMICRON [Concomitant]
     Indication: DIABETES MELLITUS
     Dosage: DIAMICRON 60 MR
  4. GLUCOPHAGE [Concomitant]
     Indication: DIABETES MELLITUS

REACTIONS (2)
  - Leg amputation [Recovering/Resolving]
  - Hyperglycaemia [Recovering/Resolving]
